FAERS Safety Report 9916534 (Version 2)
Quarter: 2014Q1

REPORT INFORMATION
  Report Type: Spontaneous
  Country: GB (occurrence: None)
  Receive Date: 20140219
  Receipt Date: 20140314
  Transmission Date: 20141002
  Serious: Yes (Other)
  Sender: FDA-Public Use
  Company Number: 2014AP001326

PATIENT
  Sex: Female

DRUGS (6)
  1. MONTELUKAST (MONTELUKAST) [Suspect]
     Dates: start: 201309
  2. CETIRIZINE (CETIRIZINE) [Suspect]
     Indication: URTICARIA
     Dates: start: 201112
  3. CICLOSPORIN (CICLOSPORIN) [Suspect]
     Dates: start: 201310
  4. FEXOFENADINE HYDROCHLORIDE [Suspect]
  5. HYDROXYZINE [Suspect]
     Dates: start: 201307
  6. RANITIDINE (RANITIDINE) [Suspect]
     Dates: start: 201307

REACTIONS (6)
  - Angioedema [None]
  - Chronic spontaneous urticaria [None]
  - Condition aggravated [None]
  - Pruritus [None]
  - Drug ineffective [None]
  - Insomnia [None]
